FAERS Safety Report 9869623 (Version 5)
Quarter: 2014Q3

REPORT INFORMATION
  Report Type: Spontaneous
  Country: US (occurrence: US)
  Receive Date: 20140205
  Receipt Date: 20140703
  Transmission Date: 20150326
  Serious: No
  Sender: FDA-Public Use
  Company Number: US-009507513-1401USA014434

PATIENT
  Age: 33 Year
  Sex: Female

DRUGS (9)
  1. ALGINIC ACID [Suspect]
     Active Substance: ALGINIC ACID
  2. MIRALAX [Concomitant]
     Active Substance: POLYETHYLENE GLYCOL 3350
  3. BENTYL [Concomitant]
     Active Substance: DICYCLOMINE HYDROCHLORIDE
  4. PEGASYS [Suspect]
     Active Substance: PEGINTERFERON ALFA-2A
     Indication: CHRONIC HEPATITIS C
     Dosage: 180 MICROGRAM, QW
     Route: 058
     Dates: start: 20130920
  5. AMITIZA [Concomitant]
     Active Substance: LUBIPROSTONE
     Indication: ABDOMINAL DISTENSION
  6. AMITIZA [Concomitant]
     Active Substance: LUBIPROSTONE
     Indication: FLATULENCE
     Dosage: 8 MG, QD
  7. VICTRELIS [Suspect]
     Active Substance: BOCEPREVIR
     Indication: CHRONIC HEPATITIS C
     Dosage: UNK, TID
     Route: 065
     Dates: start: 20131018
  8. RIBAVIRIN. [Suspect]
     Active Substance: RIBAVIRIN
     Indication: CHRONIC HEPATITIS C
     Dosage: 800 MG, QD
     Route: 065
     Dates: start: 20130920
  9. ADVIL [Concomitant]
     Active Substance: IBUPROFEN

REACTIONS (34)
  - Pain [Unknown]
  - Secretion discharge [Unknown]
  - Injection site irritation [Recovering/Resolving]
  - Weight decreased [Unknown]
  - Alopecia [Recovering/Resolving]
  - Productive cough [Unknown]
  - Emotional disorder [Unknown]
  - Injection site bruising [Recovering/Resolving]
  - Platelet count decreased [Unknown]
  - Drug dose omission [Unknown]
  - Faeces discoloured [Unknown]
  - Weight increased [Unknown]
  - Pruritus [Unknown]
  - Burning sensation [Unknown]
  - Skin exfoliation [Unknown]
  - Hyperchlorhydria [Unknown]
  - Rhinorrhoea [Unknown]
  - Dysgeusia [Unknown]
  - Abdominal distension [Recovered/Resolved]
  - White blood cell count decreased [Unknown]
  - Red blood cell count decreased [Unknown]
  - Diarrhoea [Unknown]
  - Abnormal faeces [Unknown]
  - Dry mouth [Unknown]
  - Sinus headache [Unknown]
  - Pyrexia [Unknown]
  - Hypersomnia [Unknown]
  - Dyspepsia [Unknown]
  - Gastric disorder [Unknown]
  - Irritable bowel syndrome [Unknown]
  - Throat irritation [Unknown]
  - Musculoskeletal stiffness [Recovered/Resolved]
  - Dizziness [Unknown]
  - Flatulence [Recovered/Resolved]

NARRATIVE: CASE EVENT DATE: 20140307
